FAERS Safety Report 19370823 (Version 1)
Quarter: 2021Q2

REPORT INFORMATION
  Report Type: Report from Study
  Country: US (occurrence: US)
  Receive Date: 20210603
  Receipt Date: 20210603
  Transmission Date: 20210717
  Serious: Yes (Other)
  Sender: FDA-Public Use
  Company Number: US-TAKEDA-US202033658

PATIENT
  Age: 44 Year
  Sex: Female
  Weight: 72.56 kg

DRUGS (21)
  1. AZELASTINE. [Concomitant]
     Active Substance: AZELASTINE HYDROCHLORIDE
     Indication: RHINITIS
     Dosage: 137 MICROGRAM
     Route: 045
     Dates: start: 2017
  2. MONTELUKAST [Concomitant]
     Active Substance: MONTELUKAST SODIUM
     Indication: ASTHMA
     Dosage: 10 MILLIGRAM
     Route: 048
     Dates: start: 2014
  3. ALBUTEROL SULFATE. [Concomitant]
     Active Substance: ALBUTEROL SULFATE
     Indication: ASTHMA
     Dosage: 90 MICROGRAM
     Route: 055
     Dates: start: 1984
  4. BENRALIZUMAB. [Concomitant]
     Active Substance: BENRALIZUMAB
     Indication: ASTHMA
     Dosage: 30 MILLIGRAM
     Route: 058
     Dates: start: 201803
  5. CALCIUM [Concomitant]
     Active Substance: CALCIUM
     Indication: BONE DENSITY DECREASED
     Dosage: 1500 MILLIGRAM
     Route: 048
     Dates: start: 201911
  6. OMEGA?3 FATTY ACIDS [Concomitant]
     Active Substance: OMEGA-3 FATTY ACIDS
     Indication: ROUTINE HEALTH MAINTENANCE
     Dosage: 1 CAPSULE
     Route: 048
     Dates: start: 201904
  7. ZADITOR [KETOTIFEN] [Concomitant]
     Indication: RHINITIS ALLERGIC
     Dosage: 1 GTT DROPS
     Route: 050
     Dates: start: 201912
  8. VITAMIN D [VITAMIN D NOS] [Concomitant]
     Active Substance: VITAMIN D NOS
     Indication: BONE DENSITY DECREASED
     Dosage: 2000 INTERNATIONAL UNIT
     Route: 048
     Dates: start: 201911
  9. SALINE NASAL MIST [Concomitant]
     Indication: RHINITIS ALLERGIC
     Dosage: 1 SPRAY
     Route: 045
     Dates: start: 201912
  10. SULFAMETHOXAZOLE [Concomitant]
     Active Substance: SULFAMETHOXAZOLE
     Indication: STAPHYLOCOCCAL INFECTION
     Dosage: UNK
     Route: 048
     Dates: start: 20201102, end: 20201116
  11. ALBUTEROL SULFATE;IPRATROPIUM BROMIDE [Concomitant]
     Indication: ASTHMA
     Dosage: 3 MILLILITER
     Route: 055
     Dates: start: 2014
  12. PEPCID AC [Concomitant]
     Active Substance: FAMOTIDINE
     Indication: GASTROOESOPHAGEAL REFLUX DISEASE
     Dosage: 20 MILLIGRAM
     Route: 048
     Dates: start: 20160607
  13. NORTHERA [Concomitant]
     Active Substance: DROXIDOPA
     Indication: AUTONOMIC NERVOUS SYSTEM IMBALANCE
     Dosage: 600 MILLIGRAM
     Route: 048
     Dates: start: 201909
  14. EPINEPHRINE. [Concomitant]
     Active Substance: EPINEPHRINE
     Indication: ANAPHYLAXIS PROPHYLAXIS
     Dosage: 0.3 MILLIGRAM
     Route: 030
     Dates: start: 20171009
  15. LEVOCETIRIZINE [Concomitant]
     Active Substance: LEVOCETIRIZINE
     Indication: RHINITIS
     Dosage: 5 MILLIGRAM
     Route: 048
     Dates: start: 2014
  16. MIDODRINE [Concomitant]
     Active Substance: MIDODRINE
     Indication: AUTONOMIC NERVOUS SYSTEM IMBALANCE
     Dosage: 10 MICROGRAM
     Route: 048
     Dates: start: 201811, end: 201909
  17. MULTIVITAMINS WITH MINERALS [ASCORBIC ACID;CALCIUM PANTOTHENATE;CYANOC [Concomitant]
     Active Substance: MINERALS\VITAMINS
     Indication: ROUTINE HEALTH MAINTENANCE
     Dosage: 1 TABLET
     Route: 048
     Dates: start: 201904
  18. LANADELUMAB [Suspect]
     Active Substance: LANADELUMAB
     Indication: HEREDITARY ANGIOEDEMA
     Dosage: 300 MILLIGRAM, 1X/2WKS
     Route: 065
     Dates: start: 20190227
  19. FLUTICASONE FUROATE;VILANTEROL [Concomitant]
     Active Substance: FLUTICASONE FUROATE\VILANTEROL TRIFENATATE
     Indication: ASTHMA
     Dosage: 1 PUFFS
     Route: 055
     Dates: start: 201711
  20. AMITRIPTYLINE [Concomitant]
     Active Substance: AMITRIPTYLINE
     Indication: RAPID EYE MOVEMENT SLEEP BEHAVIOUR DISORDER
     Dosage: 25 MILLIGRAM
     Route: 048
     Dates: start: 201809
  21. FLUTICASONE. [Concomitant]
     Active Substance: FLUTICASONE
     Indication: RHINITIS
     Dosage: 1 SPRAY
     Route: 045
     Dates: start: 2014

REACTIONS (4)
  - Staphylococcal infection [Recovered/Resolved]
  - Localised infection [Recovered/Resolved]
  - Sleep apnoea syndrome [Recovered/Resolved]
  - Hereditary angioedema [Recovered/Resolved]

NARRATIVE: CASE EVENT DATE: 201912
